FAERS Safety Report 9381621 (Version 1)
Quarter: 2013Q3

REPORT INFORMATION
  Report Type: Spontaneous
  Country: IT (occurrence: IT)
  Receive Date: 20130703
  Receipt Date: 20130703
  Transmission Date: 20140515
  Serious: Yes (Hospitalization)
  Sender: FDA-Public Use
  Company Number: IT-SANOFI-AVENTIS-2013SA064864

PATIENT
  Age: 18 Year
  Sex: Female

DRUGS (5)
  1. RIFADIN [Suspect]
     Indication: INTENTIONAL SELF-INJURY
     Dosage: DOSE:5 UNIT(S)
     Route: 048
     Dates: start: 20130509, end: 20130509
  2. LYRICA [Suspect]
     Indication: INTENTIONAL SELF-INJURY
     Dosage: DOSE:14 UNIT(S)
     Route: 048
     Dates: start: 20130509, end: 20130509
  3. ANSIOLIN [Suspect]
     Indication: INTENTIONAL SELF-INJURY
     Dosage: STRENGTH: 5%
     Route: 048
     Dates: start: 20130509, end: 20130509
  4. AUGMENTIN [Suspect]
     Indication: INTENTIONAL SELF-INJURY
     Dosage: STRENGTH: 875/125 MG DOSE:5 UNIT(S)
     Route: 048
     Dates: start: 20130509, end: 20130509
  5. PALEXIA [Suspect]
     Indication: INTENTIONAL SELF-INJURY
     Dosage: DOSE:2 UNIT(S)
     Route: 048
     Dates: start: 20130509, end: 20130509

REACTIONS (4)
  - Agitation [Unknown]
  - Drug abuse [Unknown]
  - Confusional state [Unknown]
  - Blood bilirubin unconjugated increased [Unknown]
